FAERS Safety Report 16976436 (Version 1)
Quarter: 2019Q4

REPORT INFORMATION
  Report Type: Report from Study
  Country: CA (occurrence: CA)
  Receive Date: 20191030
  Receipt Date: 20191030
  Transmission Date: 20200122
  Serious: Yes (Hospitalization)
  Sender: FDA-Public Use
  Company Number: CA-HLSUS-2019-CA-001081

PATIENT
  Age: 30 Year
  Sex: Male

DRUGS (1)
  1. CLOZARIL [Suspect]
     Active Substance: CLOZAPINE
     Dosage: 400MG
     Route: 048
     Dates: start: 20000215, end: 20190913

REACTIONS (6)
  - Intestinal obstruction [Recovered/Resolved]
  - Heart rate increased [Unknown]
  - Gastrointestinal disorder [Unknown]
  - Neutropenia [Not Recovered/Not Resolved]
  - Gamma-glutamyltransferase increased [Unknown]
  - White blood cell count decreased [Unknown]

NARRATIVE: CASE EVENT DATE: 20190912
